FAERS Safety Report 19007056 (Version 1)
Quarter: 2021Q1

REPORT INFORMATION
  Report Type: Spontaneous
  Country: US (occurrence: US)
  Receive Date: 20210313
  Receipt Date: 20210313
  Transmission Date: 20210420
  Serious: Yes (Other)
  Sender: FDA-Public Use
  Company Number: None

PATIENT

DRUGS (2)
  1. AMLODIPINE [Suspect]
     Active Substance: AMLODIPINE BESYLATE
     Dates: start: 20210223, end: 20210310
  2. ESCITALOPRAM TAB 5MG [Concomitant]

REACTIONS (4)
  - Fall [None]
  - Ankle fracture [None]
  - Flushing [None]
  - Dizziness [None]
